FAERS Safety Report 10457663 (Version 2)
Quarter: 2014Q4

REPORT INFORMATION
  Report Type: Spontaneous
  Country: US (occurrence: US)
  Receive Date: 20140916
  Receipt Date: 20141113
  Transmission Date: 20150528
  Serious: Yes (Other)
  Sender: FDA-Public Use
  Company Number: US-GILEAD-2014-0115488

PATIENT
  Age: 51 Year
  Sex: Female

DRUGS (3)
  1. REMODULIN [Concomitant]
     Active Substance: TREPROSTINIL
  2. ADCIRCA [Concomitant]
     Active Substance: TADALAFIL
  3. LETAIRIS [Suspect]
     Active Substance: AMBRISENTAN
     Indication: PRODUCT USED FOR UNKNOWN INDICATION
     Dosage: 5 MG, QD
     Route: 065
     Dates: start: 20140829

REACTIONS (7)
  - Gastrointestinal disorder [Unknown]
  - Feeling abnormal [Unknown]
  - Catheter management [Unknown]
  - Chest pain [Unknown]
  - Hot flush [Unknown]
  - Leukaemia [Unknown]
  - Palpitations [Unknown]

NARRATIVE: CASE EVENT DATE: 201410
